FAERS Safety Report 10050097 (Version 1)
Quarter: 2014Q2

REPORT INFORMATION
  Report Type: Spontaneous
  Country: US (occurrence: US)
  Receive Date: 20140401
  Receipt Date: 20140401
  Transmission Date: 20141212
  Serious: Yes (Hospitalization, Other)
  Sender: FDA-Public Use
  Company Number: US-ASTRAZENECA-2014SE21020

PATIENT
  Age: 51 Year
  Sex: Male
  Weight: 126.1 kg

DRUGS (24)
  1. NEXIUM [Suspect]
     Indication: BARRETT^S OESOPHAGUS
     Route: 048
     Dates: start: 2005
  2. NEXIUM [Suspect]
     Indication: HIATUS HERNIA
     Route: 048
     Dates: start: 2005
  3. TOPROL XL [Suspect]
     Indication: CARDIAC DISORDER
     Route: 048
     Dates: start: 2002
  4. TOPROL XL [Suspect]
     Indication: BLOOD PRESSURE ABNORMAL
     Route: 048
     Dates: start: 2002
  5. TOPROL XL [Suspect]
     Indication: CARDIAC DISORDER
     Route: 048
  6. TOPROL XL [Suspect]
     Indication: BLOOD PRESSURE ABNORMAL
     Route: 048
  7. CRESTOR [Suspect]
     Indication: BLOOD CHOLESTEROL ABNORMAL
     Route: 048
     Dates: start: 2003
  8. VASOTEC [Concomitant]
     Indication: CARDIAC DISORDER
     Route: 048
     Dates: start: 2002
  9. VASOTEC [Concomitant]
     Indication: BLOOD PRESSURE ABNORMAL
     Route: 048
     Dates: start: 2002
  10. ISOSORBIDE [Concomitant]
     Indication: CARDIAC DISORDER
     Route: 048
     Dates: start: 2005
  11. PLAVIX [Concomitant]
     Indication: ANTICOAGULANT THERAPY
     Route: 048
     Dates: start: 2006
  12. HYTRIN OR TERAZOSIN [Concomitant]
     Indication: BLOOD PRESSURE ABNORMAL
     Route: 048
  13. JANUMET [Concomitant]
     Indication: DIABETES MELLITUS
     Dosage: 50 500 MG BID
     Route: 048
     Dates: start: 2008
  14. GLIMEPERIDE [Concomitant]
     Indication: DIABETES MELLITUS
     Route: 048
     Dates: start: 2008
  15. FUROSEMIDE [Concomitant]
     Indication: OEDEMA PERIPHERAL
     Route: 048
     Dates: start: 2004
  16. BAYER ASPIRIN [Concomitant]
     Indication: CARDIAC DISORDER
     Route: 048
     Dates: start: 2002
  17. NITROGLYCERINE SL [Concomitant]
     Indication: MYOCARDIAL INFARCTION
     Dosage: TAKE UP TO 3 AND EACH WITHIN 5 MINUTES OF EACHOTHER, PRN
     Route: 050
     Dates: start: 2002
  18. FLO MAX [Concomitant]
     Indication: PROSTATIC DISORDER
     Route: 048
     Dates: start: 2007
  19. PROZAC [Concomitant]
     Indication: DEPRESSION
     Route: 048
     Dates: start: 2009
  20. BUSPIRON [Concomitant]
     Indication: DEPRESSION
     Route: 048
     Dates: start: 2009
  21. ALLOPURINOL [Concomitant]
     Indication: GOUT
     Route: 048
     Dates: start: 2006
  22. ZOLPIDEM [Concomitant]
     Indication: SLEEP DISORDER
     Route: 048
     Dates: start: 2003
  23. ZOFRAN [Concomitant]
     Indication: VOMITING
     Route: 048
     Dates: start: 2010
  24. ZOFRAN [Concomitant]
     Indication: NAUSEA
     Route: 048
     Dates: start: 2010

REACTIONS (12)
  - Cervical vertebral fracture [Unknown]
  - Spinal fracture [Unknown]
  - Myocardial infarction [Unknown]
  - Appendicitis [Unknown]
  - Nausea [Not Recovered/Not Resolved]
  - Diabetes mellitus [Not Recovered/Not Resolved]
  - Blood pressure increased [Unknown]
  - Hyperaesthesia [Unknown]
  - Gynaecomastia [Not Recovered/Not Resolved]
  - Alopecia [Unknown]
  - Burning sensation [Unknown]
  - Off label use [Unknown]
